FAERS Safety Report 14154764 (Version 7)
Quarter: 2021Q3

REPORT INFORMATION
  Report Type: Spontaneous
  Country: US (occurrence: US)
  Receive Date: 20171102
  Receipt Date: 20210813
  Transmission Date: 20211014
  Serious: Yes (Other)
  Sender: FDA-Public Use
  Company Number: US-BIOMARINAP-US-2017-115950

PATIENT
  Age: 18 Year
  Sex: Male

DRUGS (2)
  1. ALDURAZYME [Suspect]
     Active Substance: LARONIDASE
     Dosage: 0.58 MG/KG, QW
     Route: 041
     Dates: start: 20030723
  2. ALDURAZYME [Suspect]
     Active Substance: LARONIDASE
     Indication: MUCOPOLYSACCHARIDOSIS I
     Dosage: 29 UNK Q1
     Route: 041
     Dates: start: 20030523, end: 20171012

REACTIONS (4)
  - Infusion related reaction [Unknown]
  - Abdominal distension [Unknown]
  - Scoliosis [Unknown]
  - Radial nerve palsy [Unknown]

NARRATIVE: CASE EVENT DATE: 20171012
